FAERS Safety Report 9941254 (Version 1)
Quarter: 2014Q1

REPORT INFORMATION
  Report Type: Report from Study
  Country: US (occurrence: US)
  Receive Date: 20140303
  Receipt Date: 20140303
  Transmission Date: 20141002
  Serious: No
  Sender: FDA-Public Use
  Company Number: US-ABBVIE-13P-163-1043267-00

PATIENT
  Age: 56 Year
  Sex: Female
  Weight: 95.34 kg

DRUGS (19)
  1. HUMIRA [Suspect]
     Indication: CROHN^S DISEASE
     Dosage: LOADING DOSE
     Dates: start: 20130125
  2. ACTOS [Concomitant]
     Indication: DIABETES MELLITUS
  3. ATENOLOL [Concomitant]
     Indication: HYPERTENSION
  4. CELEBREX [Concomitant]
     Indication: PAIN
  5. CLARITIN [Concomitant]
     Indication: HYPERSENSITIVITY
  6. FISH OIL [Concomitant]
     Indication: SUPPLEMENTATION THERAPY
  7. GLYBURIDE [Concomitant]
     Indication: DIABETES MELLITUS
  8. JANUVIA [Concomitant]
     Indication: DIABETES MELLITUS
  9. METFORMIN [Concomitant]
     Indication: DIABETES MELLITUS
  10. MULTIVITAMIN [Concomitant]
     Indication: VITAMIN SUPPLEMENTATION
  11. NIFEDIPINE [Concomitant]
     Indication: HYPERTENSION
  12. PRAVACHOL [Concomitant]
     Indication: BLOOD CHOLESTEROL INCREASED
  13. SOMA [Concomitant]
     Indication: PAIN
  14. VICODIN [Concomitant]
     Indication: PAIN
  15. VITAMIN D [Concomitant]
     Indication: VITAMIN SUPPLEMENTATION
  16. XANAX [Concomitant]
     Indication: ANXIETY
  17. ZETIA [Concomitant]
     Indication: BLOOD CHOLESTEROL INCREASED
  18. ZOFRAN [Concomitant]
     Indication: NAUSEA
  19. ZYRTEC [Concomitant]
     Indication: HYPERSENSITIVITY

REACTIONS (1)
  - Injection site haematoma [Recovered/Resolved]
